FAERS Safety Report 9321490 (Version 1)
Quarter: 2013Q2

REPORT INFORMATION
  Report Type: Spontaneous
  Country: NL (occurrence: NL)
  Receive Date: 20130531
  Receipt Date: 20130531
  Transmission Date: 20140414
  Serious: Yes (Other)
  Sender: FDA-Public Use
  Company Number: PHHY2013NL052836

PATIENT
  Sex: Female

DRUGS (18)
  1. CEFTRIAXONE [Suspect]
     Indication: URINARY TRACT INFECTION
     Dosage: 2000 MG, UNK
  2. CLONAZEPAM [Concomitant]
  3. DIAZEPAM [Concomitant]
  4. LEVOTHYROXINE [Concomitant]
  5. METOCLOPRAMIDE [Concomitant]
  6. VALPROIC ACID [Concomitant]
  7. NADROPARIN [Concomitant]
  8. DOCUSATE [Concomitant]
  9. PLANTAGO OVATA LEAF [Concomitant]
  10. TEMAZEPAM [Concomitant]
  11. CARBAMAZEPINE [Concomitant]
  12. MACROGOL [Concomitant]
  13. PARACETAMOL [Concomitant]
  14. LEVETIRACETAM [Concomitant]
  15. CETIRIZINE [Concomitant]
  16. CIPROFLOXACIN [Concomitant]
  17. TRAMADOL [Concomitant]
  18. FLUTICASONE [Concomitant]

REACTIONS (1)
  - Hepatitis [Recovering/Resolving]
